FAERS Safety Report 16700415 (Version 1)
Quarter: 2019Q3

REPORT INFORMATION
  Report Type: Spontaneous
  Country: CA (occurrence: CA)
  Receive Date: 20190814
  Receipt Date: 20190814
  Transmission Date: 20191004
  Serious: Yes (Hospitalization)
  Sender: FDA-Public Use
  Company Number: CA-SA-2019SA214836

PATIENT
  Sex: Female

DRUGS (2)
  1. ZANTAC [Suspect]
     Active Substance: RANITIDINE HYDROCHLORIDE
     Dosage: UNK UNK, UNK
     Route: 065
  2. CODEINE [Suspect]
     Active Substance: CODEINE
     Dosage: UNK UNK, UNK
     Route: 065

REACTIONS (2)
  - Haematochezia [Unknown]
  - Drug hypersensitivity [Unknown]
